FAERS Safety Report 12708727 (Version 1)
Quarter: 2016Q3

REPORT INFORMATION
  Report Type: Spontaneous
  Country: CN (occurrence: CN)
  Receive Date: 20160901
  Receipt Date: 20160901
  Transmission Date: 20161109
  Serious: Yes (Hospitalization, Other)
  Sender: FDA-Public Use
  Company Number: CN-GILEAD-2016-0230747

PATIENT
  Age: 78 Year
  Sex: Female

DRUGS (1)
  1. HEPSERA [Suspect]
     Active Substance: ADEFOVIR DIPIVOXIL
     Indication: CHRONIC HEPATITIS B
     Dosage: UNK
     Route: 065
     Dates: start: 2010

REACTIONS (11)
  - Discomfort [Unknown]
  - Pain in extremity [Recovered/Resolved]
  - Pain [Recovered/Resolved]
  - Osteoporosis [Unknown]
  - Asthenia [Unknown]
  - Bronchitis chronic [Unknown]
  - Bone pain [Unknown]
  - Chest discomfort [Unknown]
  - Osteomalacia [Recovering/Resolving]
  - Hypophosphataemia [Recovering/Resolving]
  - Abdominal distension [Unknown]
